FAERS Safety Report 15961756 (Version 1)
Quarter: 2019Q1

REPORT INFORMATION
  Report Type: Spontaneous
  Country: US (occurrence: US)
  Receive Date: 20190214
  Receipt Date: 20190214
  Transmission Date: 20190417
  Serious: No
  Sender: FDA-Public Use
  Company Number: None

PATIENT

DRUGS (1)
  1. ENOXAPARIN, 40 MG [Suspect]
     Active Substance: ENOXAPARIN
     Dates: start: 20190213, end: 20190213

REACTIONS (1)
  - Device malfunction [None]

NARRATIVE: CASE EVENT DATE: 20190213
